FAERS Safety Report 5826539-X (Version None)
Quarter: 2008Q3

REPORT INFORMATION
  Report Type: 
  Country: None (occurrence: None)
  Receive Date: 20080729
  Receipt Date: 20080721
  Transmission Date: 20090109
  Serious: Yes (Death, Hospitalization, Other)
  Sender: FDA-Public Use
  Company Number: US-ELI_LILLY_AND_COMPANY-US200807004004

PATIENT
  Age: 68 Year
  Sex: Male

DRUGS (2)
  1. HUMULIN N [Suspect]
     Dosage: 80 U, DAILY (1/D)
  2. OXYGEN [Concomitant]

REACTIONS (9)
  - CHRONIC OBSTRUCTIVE PULMONARY DISEASE [None]
  - DEATH [None]
  - FLUID RETENTION [None]
  - HOSPITALISATION [None]
  - LIVER DISORDER [None]
  - LUNG NEOPLASM MALIGNANT [None]
  - RENAL DISORDER [None]
  - SLEEP APNOEA SYNDROME [None]
  - VISUAL IMPAIRMENT [None]
